FAERS Safety Report 11198133 (Version 1)
Quarter: 2015Q2

REPORT INFORMATION
  Report Type: Spontaneous
  Country: DE (occurrence: DE)
  Receive Date: 20150618
  Receipt Date: 20150618
  Transmission Date: 20150821
  Serious: Yes (Other)
  Sender: FDA-Public Use
  Company Number: DE-AUROBINDO-AUR-APL-2015-05158

PATIENT
  Sex: Female

DRUGS (4)
  1. SUMATRIPTAN. [Suspect]
     Active Substance: SUMATRIPTAN
     Indication: MIGRAINE
     Dosage: 50 MG, TWO TIMES A DAY
     Route: 048
     Dates: start: 20150518
  2. ZINKOROTAT POS [Concomitant]
     Indication: IMMUNE SYSTEM DISORDER
     Dosage: UNK, ONCE A DAY
     Route: 065
  3. MOCLOBEMIDE [Concomitant]
     Active Substance: MOCLOBEMIDE
     Indication: DEPRESSION
     Dosage: 300 MG, TWO TIMES A DAY
     Route: 065
  4. VENOSTASIN                         /00097701/ [Concomitant]
     Indication: ASTHENIA
     Dosage: 50 MG, TWO TIMES A DAY
     Route: 065

REACTIONS (5)
  - Altered state of consciousness [Recovered/Resolved]
  - Pain [Recovered/Resolved]
  - Fatigue [Recovered/Resolved]
  - Dizziness [Recovered/Resolved]
  - Coordination abnormal [Recovered/Resolved]
